FAERS Safety Report 17369198 (Version 1)
Quarter: 2020Q1

REPORT INFORMATION
  Report Type: Spontaneous
  Country: US (occurrence: US)
  Receive Date: 20190908
  Receipt Date: 20190908
  Transmission Date: 20200409
  Serious: Yes (Hospitalization)
  Sender: FDA-Public Use
  Company Number: None

PATIENT
  Age: 16 Year
  Sex: Male

DRUGS (1)
  1. VAPING MARIJUANA [Suspect]
     Active Substance: CANNABIS SATIVA SUBSP. INDICA TOP\DEVICE
     Indication: SUBSTANCE USE
     Route: 055

REACTIONS (9)
  - Pneumonia [None]
  - C-reactive protein increased [None]
  - Neutrophil count increased [None]
  - Cough [None]
  - Pulmonary imaging procedure abnormal [None]
  - White blood cell count increased [None]
  - Abnormal loss of weight [None]
  - Dyspnoea [None]
  - Lymphocyte count decreased [None]

NARRATIVE: CASE EVENT DATE: 20190721
